FAERS Safety Report 20034962 (Version 2)
Quarter: 2022Q2

REPORT INFORMATION
  Report Type: Spontaneous
  Country: JP (occurrence: JP)
  Receive Date: 20211104
  Receipt Date: 20220419
  Transmission Date: 20220721
  Serious: Yes (Other)
  Sender: FDA-Public Use
  Company Number: JP-CHUGAI-2021025031

PATIENT
  Age: 44 Year
  Sex: Female
  Weight: 43 kg

DRUGS (6)
  1. ACTEMRA [Suspect]
     Active Substance: TOCILIZUMAB
     Indication: Rheumatoid arthritis
     Dosage: 162 MILLIGRAM, ONCE/2WEEKS
     Route: 058
     Dates: start: 20180926, end: 2021
  2. ACTEMRA [Suspect]
     Active Substance: TOCILIZUMAB
     Dosage: 162 MILLIGRAM, ONCE/2WEEKS
     Route: 058
     Dates: start: 2021, end: 20220208
  3. ACTEMRA [Suspect]
     Active Substance: TOCILIZUMAB
     Dosage: 162 MILLIGRAM, ONCE/2WEEKS
     Route: 058
     Dates: start: 20220219
  4. MOSAPRIDE CITRATE [Concomitant]
     Active Substance: MOSAPRIDE CITRATE
     Dosage: UNK, SINGLE
     Route: 048
     Dates: start: 20210322, end: 20210322
  5. REBAMIPIDE [Concomitant]
     Active Substance: REBAMIPIDE
     Dosage: UNK, SINGLE
     Route: 065
     Dates: start: 20210322, end: 20210322
  6. CELECOXIB [Concomitant]
     Active Substance: CELECOXIB
     Dosage: UNK, SINGLE
     Route: 065
     Dates: start: 20210322, end: 20210322

REACTIONS (2)
  - Coronavirus test positive [Recovered/Resolved with Sequelae]
  - Breast cancer [Recovered/Resolved]

NARRATIVE: CASE EVENT DATE: 20210906
